FAERS Safety Report 22153999 (Version 2)
Quarter: 2023Q2

REPORT INFORMATION
  Report Type: Report from Study
  Country: US (occurrence: US)
  Receive Date: 20230330
  Receipt Date: 20230410
  Transmission Date: 20230722
  Serious: Yes (Hospitalization)
  Sender: FDA-Public Use
  Company Number: US-JNJFOC-20230363754

PATIENT
  Sex: Male
  Weight: 53.8 kg

DRUGS (3)
  1. INFLIXIMAB [Suspect]
     Active Substance: INFLIXIMAB
     Indication: Crohn^s disease
     Route: 041
     Dates: start: 20110408, end: 20190729
  2. HUMIRA [Concomitant]
     Active Substance: ADALIMUMAB
     Dosage: DATE OF LAST ADMINISTRATION PRIOR TO THE EVENT ON 10-DEC-2021
     Dates: start: 20210224
  3. ENTYVIO [Concomitant]
     Active Substance: VEDOLIZUMAB
     Dates: start: 20200724, end: 20211210

REACTIONS (1)
  - Crohn^s disease [Recovered/Resolved]

NARRATIVE: CASE EVENT DATE: 20211220
